FAERS Safety Report 21774102 (Version 1)
Quarter: 2022Q4

REPORT INFORMATION
  Report Type: Other
  Country: GB (occurrence: GB)
  Receive Date: 20221223
  Receipt Date: 20221223
  Transmission Date: 20230112
  Serious: Yes (Death, Life-Threatening, Other)
  Sender: FDA-Public Use
  Company Number: GB-CELLTRION INC.-2022GB020918

PATIENT

DRUGS (2)
  1. INFLIXIMAB [Suspect]
     Active Substance: INFLIXIMAB
     Indication: Crohn^s disease
     Dosage: 5MG/KG EVERY 8 WEEKS
     Dates: start: 20150830
  2. AZATHIOPRINE [Concomitant]
     Active Substance: AZATHIOPRINE
     Indication: Crohn^s disease
     Dosage: UNK
     Dates: start: 20160101

REACTIONS (3)
  - Malignant neoplasm of unknown primary site [Fatal]
  - Metastases to liver [Fatal]
  - Metastases to lung [Fatal]

NARRATIVE: CASE EVENT DATE: 20220714
